FAERS Safety Report 17677834 (Version 2)
Quarter: 2020Q2

REPORT INFORMATION
  Report Type: Report from Study
  Country: AU (occurrence: AU)
  Receive Date: 20200416
  Receipt Date: 20200624
  Transmission Date: 20200714
  Serious: Yes (Other)
  Sender: FDA-Public Use
  Company Number: AU-BIOGEN-2020BI00863831

PATIENT
  Sex: Female

DRUGS (1)
  1. TYSABRI [Suspect]
     Active Substance: NATALIZUMAB
     Indication: MULTIPLE SCLEROSIS
     Route: 042
     Dates: start: 2009, end: 2014

REACTIONS (3)
  - Abdominal pain upper [Unknown]
  - Major depression [Unknown]
  - Flushing [Unknown]

NARRATIVE: CASE EVENT DATE: 2014
